FAERS Safety Report 15261630 (Version 1)
Quarter: 2018Q3

REPORT INFORMATION
  Report Type: Spontaneous
  Country: GB (occurrence: GB)
  Receive Date: 20180809
  Receipt Date: 20180809
  Transmission Date: 20181010
  Serious: Yes (Other)
  Sender: FDA-Public Use
  Company Number: GB-PFIZER INC-2018313938

PATIENT
  Age: 36 Year
  Sex: Female

DRUGS (16)
  1. NITROGLYCERIN. [Suspect]
     Active Substance: NITROGLYCERIN
     Indication: HYPERTENSION
     Dosage: UNK
  2. INSULIN [Suspect]
     Active Substance: INSULIN NOS
     Indication: DIABETES MELLITUS
     Dosage: UNK
  3. COTRIMOXAZOLE [Concomitant]
     Active Substance: SULFAMETHOXAZOLE\TRIMETHOPRIM
     Indication: RENAL IMPAIRMENT
     Dosage: 10 MG/KG, DAILY, (BASED ON TRIMETHOPRIM INTRAVENOUS [I.V.] 6?HOURLY [H]))
     Route: 042
  4. COTRIMOXAZOLE [Concomitant]
     Active Substance: SULFAMETHOXAZOLE\TRIMETHOPRIM
     Indication: ENCEPHALOPATHY
  5. COTRIMOXAZOLE [Concomitant]
     Active Substance: SULFAMETHOXAZOLE\TRIMETHOPRIM
     Indication: INFECTION
  6. TIMENTIN [Concomitant]
     Active Substance: CLAVULANATE POTASSIUM\TICARCILLIN DISODIUM
     Indication: RENAL IMPAIRMENT
     Dosage: 3.1 DF, 2X/DAY, (LOADING DOSE 3.1 G FOLLOWED BY 2 GI.V. 12 H))
     Route: 042
  7. LAMIVUDINE. [Suspect]
     Active Substance: LAMIVUDINE
     Indication: ANTIRETROVIRAL THERAPY
     Dosage: UNK
  8. ACICLOVIR [Concomitant]
     Active Substance: ACYCLOVIR
     Indication: ENCEPHALOPATHY
     Dosage: UNK UNK, 3X/DAY, (10 G/KG I.V. 8 H)
     Route: 042
  9. AMPHOTERICIN B. [Concomitant]
     Active Substance: AMPHOTERICIN B
     Indication: INFECTION
  10. AMPHOTERICIN B. [Concomitant]
     Active Substance: AMPHOTERICIN B
     Indication: RENAL IMPAIRMENT
     Dosage: 0.5 MG/KG, UNK (24?48 H)
     Route: 042
  11. ZIDOVUDINE. [Suspect]
     Active Substance: ZIDOVUDINE
     Indication: ANTIRETROVIRAL THERAPY
     Dosage: UNK
  12. ACICLOVIR [Concomitant]
     Active Substance: ACYCLOVIR
     Indication: INFECTION
  13. AMPHOTERICIN B. [Concomitant]
     Active Substance: AMPHOTERICIN B
     Indication: ENCEPHALOPATHY
  14. TIMENTIN [Concomitant]
     Active Substance: CLAVULANATE POTASSIUM\TICARCILLIN DISODIUM
     Indication: ENCEPHALOPATHY
     Dosage: 2 G, 2X/DAY, (LOADING DOSE 3.1 G FOLLOWED BY 2 GI.V. 12 H))
     Route: 042
  15. NEVIRAPINE. [Suspect]
     Active Substance: NEVIRAPINE
     Indication: ANTIRETROVIRAL THERAPY
     Dosage: UNK
  16. TIMENTIN [Concomitant]
     Active Substance: CLAVULANATE POTASSIUM\TICARCILLIN DISODIUM
     Indication: INFECTION

REACTIONS (2)
  - Treatment noncompliance [Unknown]
  - Posterior reversible encephalopathy syndrome [Recovering/Resolving]
